FAERS Safety Report 14665996 (Version 1)
Quarter: 2018Q1

REPORT INFORMATION
  Report Type: Spontaneous
  Country: AT (occurrence: AT)
  Receive Date: 20180321
  Receipt Date: 20180321
  Transmission Date: 20180509
  Serious: Yes (Hospitalization)
  Sender: FDA-Public Use
  Company Number: AT-TEVA-2018-AT-871064

PATIENT
  Age: 88 Year
  Sex: Female

DRUGS (14)
  1. OXYGEROLAN RETARD [Concomitant]
  2. RAMIPRIL 2,5 MG [Suspect]
     Active Substance: RAMIPRIL
  3. MAGNOSOLV [Concomitant]
  4. TRITTICO RETARD [Suspect]
     Active Substance: TRAZODONE HYDROCHLORIDE
  5. LOVENOX [Concomitant]
     Active Substance: ENOXAPARIN SODIUM
  6. TORASEMID [Suspect]
     Active Substance: TORSEMIDE
  7. RISPERIDONE. [Suspect]
     Active Substance: RISPERIDONE
  8. OLEOVIT D3 [Concomitant]
     Active Substance: CHOLECALCIFEROL
  9. GALANTAMIN [Concomitant]
  10. TEMESTA (LORAZEPAM) [Concomitant]
     Active Substance: LORAZEPAM
  11. PANTOLOC [Suspect]
     Active Substance: PANTOPRAZOLE SODIUM
  12. TROMBO ASS [Suspect]
     Active Substance: ASPIRIN
     Dosage: LONG-TERM MEDICATION
  13. IVADAL [Concomitant]
     Active Substance: ZOLPIDEM TARTRATE
  14. VENDAL [Concomitant]
     Active Substance: MORPHINE HYDROCHLORIDE

REACTIONS (1)
  - Bicytopenia [Recovered/Resolved]
